FAERS Safety Report 8923277 (Version 1)
Quarter: 2012Q4

REPORT INFORMATION
  Report Type: Report from Study
  Country: CA (occurrence: CA)
  Receive Date: 20121123
  Receipt Date: 20121123
  Transmission Date: 20130627
  Serious: Yes (Other)
  Sender: FDA-Public Use
  Company Number: CA-JNJFOC-20121107852

PATIENT
  Age: 66 Year
  Sex: Female
  Weight: 68.6 kg

DRUGS (4)
  1. REMICADE [Suspect]
     Indication: CROHN^S DISEASE
     Dosage: infusion no 8
     Route: 042
     Dates: start: 20111205
  2. REMICADE [Suspect]
     Indication: CROHN^S DISEASE
     Route: 042
     Dates: start: 20120914
  3. PENTASA [Concomitant]
     Indication: CROHN^S DISEASE
     Route: 048
  4. METHOTREXATE [Concomitant]
     Route: 030

REACTIONS (2)
  - Nephrolithiasis [Recovered/Resolved]
  - Cystitis [Recovered/Resolved]
